FAERS Safety Report 6071251-8 (Version None)
Quarter: 2009Q1

REPORT INFORMATION
  Report Type: 
  Country: None (occurrence: None)
  Receive Date: 20090204
  Receipt Date: 20090128
  Transmission Date: 20090719
  Serious: Yes (Hospitalization)
  Sender: FDA-Public Use
  Company Number: GXKR2009GB01257

PATIENT
  Age: 81 Year
  Sex: Male

DRUGS (10)
  1. CO-AMOXICLAV (NGX) (AMOXICILLIN, CLAVULANATE) [Suspect]
     Indication: EYE INFECTION
     Dosage: ORAL
     Route: 048
     Dates: start: 20081007, end: 20081014
  2. CHLORAMPHENICOL [Concomitant]
  3. FINASTERIDE [Concomitant]
  4. FLOXACILLIN SODIUM [Concomitant]
  5. FUSIDIC ACID [Concomitant]
  6. LISINOPRIL [Concomitant]
  7. PREDNISOLONE [Concomitant]
  8. .. [Concomitant]
  9. SALBUTAMOL (SALBUTAMOL) [Concomitant]
  10. FLUTICASONE PROPIONATE W/SALMETEROL XINAFOATE (FLUTICASONE PROPIONATE, [Concomitant]

REACTIONS (2)
  - CHOLELITHIASIS [None]
  - JAUNDICE [None]
